FAERS Safety Report 13736452 (Version 1)
Quarter: 2017Q3

REPORT INFORMATION
  Report Type: Spontaneous
  Country: US (occurrence: US)
  Receive Date: 20170710
  Receipt Date: 20170710
  Transmission Date: 20171127
  Serious: Yes (Death, Hospitalization)
  Sender: FDA-Public Use
  Company Number: US-SA-2017SA047615

PATIENT
  Age: 68 Year
  Sex: Female

DRUGS (8)
  1. SEREVENT DISKUS [Concomitant]
     Active Substance: SALMETEROL XINAFOATE
  2. METOPROLOL. [Concomitant]
     Active Substance: METOPROLOL
  3. LASIX [Concomitant]
     Active Substance: FUROSEMIDE
  4. LACTULOSE. [Concomitant]
     Active Substance: LACTULOSE
  5. CLARITIN [Concomitant]
     Active Substance: LORATADINE
  6. REMERON [Concomitant]
     Active Substance: MIRTAZAPINE
  7. AUBAGIO [Suspect]
     Active Substance: TERIFLUNOMIDE
     Indication: MULTIPLE SCLEROSIS RELAPSE
     Route: 048
     Dates: start: 20151014, end: 20170315
  8. PROTONIX [Concomitant]
     Active Substance: PANTOPRAZOLE SODIUM

REACTIONS (3)
  - Decubitus ulcer [Unknown]
  - Cardio-respiratory arrest [Fatal]
  - Sepsis [Fatal]

NARRATIVE: CASE EVENT DATE: 2017
